FAERS Safety Report 22083595 (Version 1)
Quarter: 2023Q1

REPORT INFORMATION
  Report Type: Report from Study
  Country: US (occurrence: US)
  Receive Date: 20230310
  Receipt Date: 20230310
  Transmission Date: 20230417
  Serious: No
  Sender: FDA-Public Use
  Company Number: US-BEH-2023155441

PATIENT
  Age: 32 Year
  Sex: Female
  Weight: 54.422 kg

DRUGS (4)
  1. HIZENTRA [Suspect]
     Active Substance: HUMAN IMMUNOGLOBULIN G
     Indication: Primary immunodeficiency syndrome
     Dosage: 5 GRAM, BIW
     Route: 058
     Dates: start: 20230209
  2. HIZENTRA [Suspect]
     Active Substance: HUMAN IMMUNOGLOBULIN G
     Indication: Immunodeficiency
     Dosage: 5 GRAM,EVERY 14 DAYS
     Route: 058
     Dates: start: 20230223, end: 20230223
  3. HIZENTRA [Suspect]
     Active Substance: HUMAN IMMUNOGLOBULIN G
     Dosage: UNK
     Route: 058
     Dates: start: 20230223
  4. HIZENTRA [Suspect]
     Active Substance: HUMAN IMMUNOGLOBULIN G
     Dosage: UNK
     Route: 058
     Dates: start: 20230223

REACTIONS (9)
  - Infusion site swelling [Unknown]
  - Infusion site erythema [Unknown]
  - Injection site reaction [Unknown]
  - Infusion site swelling [Recovered/Resolved]
  - Infusion site pain [Unknown]
  - Incorrect drug administration rate [Unknown]
  - Dehydration [Unknown]
  - Hypotension [Unknown]
  - Headache [Recovering/Resolving]

NARRATIVE: CASE EVENT DATE: 20230201
